FAERS Safety Report 7718352-3 (Version None)
Quarter: 2011Q3

REPORT INFORMATION
  Report Type: 
  Country: None (occurrence: None)
  Receive Date: 20110830
  Receipt Date: 20110823
  Transmission Date: 20111222
  Serious: Yes (Hospitalization)
  Sender: FDA-Public Use
  Company Number: PHEH2011US02455

PATIENT
  Sex: Male

DRUGS (1)
  1. GILENYA [Suspect]
     Indication: MULTIPLE SCLEROSIS
     Dosage: 0.5 MG, QD
     Route: 048
     Dates: start: 20110808

REACTIONS (5)
  - FLUSHING [None]
  - MUSCLE RIGIDITY [None]
  - CONVULSION [None]
  - VISION BLURRED [None]
  - URINARY INCONTINENCE [None]
